FAERS Safety Report 16063325 (Version 1)
Quarter: 2019Q1

REPORT INFORMATION
  Report Type: Report from Study
  Country: GB (occurrence: GB)
  Receive Date: 20190312
  Receipt Date: 20190312
  Transmission Date: 20190418
  Serious: Yes (Other)
  Sender: FDA-Public Use
  Company Number: GB-MYLANLABS-2019M1021732

PATIENT

DRUGS (4)
  1. TELZIR [Concomitant]
     Active Substance: FOSAMPRENAVIR CALCIUM
  2. ZIAGEN [Concomitant]
     Active Substance: ABACAVIR SULFATE
  3. RITONAVIR. [Concomitant]
     Active Substance: RITONAVIR
  4. TENOFOVIR [Suspect]
     Active Substance: TENOFOVIR
     Indication: HIV INFECTION
     Dosage: UNK
     Route: 065

REACTIONS (1)
  - Virologic failure [Unknown]
